FAERS Safety Report 6227798-4 (Version None)
Quarter: 2009Q2

REPORT INFORMATION
  Report Type: 
  Country: None (occurrence: None)
  Receive Date: 20090612
  Receipt Date: 20090601
  Transmission Date: 20091009
  Serious: Yes (Death, Hospitalization)
  Sender: FDA-Public Use
  Company Number: A0744271A

PATIENT
  Age: 63 Year
  Sex: Male
  Weight: 53.2 kg

DRUGS (1)
  1. AVANDIA [Suspect]
     Dosage: 4MG TWICE PER DAY
     Route: 065
     Dates: start: 20030101, end: 20060101

REACTIONS (3)
  - CARDIO-RESPIRATORY ARREST [None]
  - PNEUMONIA [None]
  - RENAL FAILURE CHRONIC [None]
